FAERS Safety Report 6751042-2 (Version None)
Quarter: 2010Q2

REPORT INFORMATION
  Report Type: 
  Country: None (occurrence: None)
  Receive Date: 20100602
  Receipt Date: 20100528
  Transmission Date: 20101027
  Serious: Yes (Hospitalization)
  Sender: FDA-Public Use
  Company Number: US-BAYER-201026824GPV

PATIENT
  Age: 70 Year
  Sex: Female

DRUGS (14)
  1. NAPROXEN [Suspect]
     Indication: DRUG USE FOR UNKNOWN INDICATION
     Route: 065
  2. VELCADE [Suspect]
     Indication: MULTIPLE MYELOMA
     Route: 042
     Dates: start: 20100329, end: 20100401
  3. MELPHALAN HYDROCHLORIDE [Suspect]
     Indication: MULTIPLE MYELOMA
     Route: 048
     Dates: start: 20100330, end: 20100401
  4. PREDNISONE [Suspect]
     Indication: MULTIPLE MYELOMA
     Route: 048
     Dates: start: 20100330, end: 20100401
  5. METFORMIN HCL [Concomitant]
  6. LOTREL [Concomitant]
  7. K-TAB [Concomitant]
  8. CALCIUM CARBONATE [Concomitant]
  9. ALBUTEROL SULFATE [Concomitant]
  10. FUROSEMIDE [Concomitant]
  11. PRAVACHOL [Concomitant]
  12. KLOR-CON [Concomitant]
  13. VICODIN [Concomitant]
  14. ATIVAN [Concomitant]

REACTIONS (2)
  - ANAEMIA [None]
  - GASTROINTESTINAL HAEMORRHAGE [None]
